FAERS Safety Report 4515415-0 (Version None)
Quarter: 2004Q4

REPORT INFORMATION
  Report Type: 
  Country: None (occurrence: None)
  Receive Date: 20041126
  Receipt Date: 20041005
  Transmission Date: 20050328
  Serious: Yes (Other)
  Sender: FDA-Public Use
  Company Number: 2004083738

PATIENT
  Age: 55 Year
  Sex: Female

DRUGS (3)
  1. GEODON [Suspect]
     Indication: AGITATION
     Dosage: 40 MG (1 IN 1 D), ORAL
     Route: 048
     Dates: start: 20040804, end: 20040809
  2. ESCITALOPRAM (ESCITALOPRAM) [Suspect]
     Indication: DEPRESSION
     Dosage: 20 MG (1 IN 1 D), ORAL
     Route: 048
     Dates: start: 20021101
  3. LORAZEPAM [Concomitant]

REACTIONS (1)
  - SEROTONIN SYNDROME [None]
